FAERS Safety Report 18416395 (Version 1)
Quarter: 2020Q4

REPORT INFORMATION
  Report Type: Other
  Country: US (occurrence: US)
  Receive Date: 20201022
  Receipt Date: 20201022
  Transmission Date: 20210114
  Serious: Yes (Hospitalization, Other)
  Sender: FDA-Public Use
  Company Number: US-ROCHE-2678983

PATIENT
  Sex: Female

DRUGS (2)
  1. CELLCEPT [Suspect]
     Active Substance: MYCOPHENOLATE MOFETIL\MYCOPHENOLATE MOFETIL HYDROCHLORIDE
     Indication: SYSTEMIC SCLERODERMA
  2. CELLCEPT [Suspect]
     Active Substance: MYCOPHENOLATE MOFETIL\MYCOPHENOLATE MOFETIL HYDROCHLORIDE
     Indication: SYSTEMIC LUPUS ERYTHEMATOSUS
     Route: 048

REACTIONS (10)
  - Dyspnoea [Unknown]
  - Abdominal distension [Unknown]
  - Right ventricular failure [Unknown]
  - Heart rate increased [Unknown]
  - Intentional product use issue [Unknown]
  - Cough [Unknown]
  - Off label use [Unknown]
  - Oesophageal candidiasis [Recovered/Resolved]
  - Syncope [Unknown]
  - Nasal congestion [Unknown]
